FAERS Safety Report 8561808-4 (Version None)
Quarter: 2012Q3

REPORT INFORMATION
  Report Type: 
  Country: None (occurrence: None)
  Receive Date: 20120802
  Receipt Date: 20120628
  Transmission Date: 20120928
  Serious: Yes (Life-Threatening)
  Sender: FDA-Public Use
  Company Number: CHPA2012US014719

PATIENT
  Age: 71 Year
  Sex: Female

DRUGS (2)
  1. ALUMINUM HYDROXIDE AND MAGNESIUM TRISILICATE [Suspect]
     Indication: ABDOMINAL DISCOMFORT
     Dosage: UNK, 4-5 TIMES A DAY
     Route: 048
     Dates: start: 20100101
  2. ACETAMINOPHEN [Concomitant]
     Indication: PAIN

REACTIONS (3)
  - FEELING ABNORMAL [None]
  - OVERDOSE [None]
  - INCORRECT DRUG ADMINISTRATION DURATION [None]
